FAERS Safety Report 6959381-7 (Version None)
Quarter: 2010Q3

REPORT INFORMATION
  Report Type: 
  Country: None (occurrence: None)
  Receive Date: 20100831
  Receipt Date: 20100831
  Transmission Date: 20110219
  Serious: Yes (Death)
  Sender: FDA-Public Use
  Company Number: None

PATIENT
  Age: 73 Year
  Sex: Male

DRUGS (7)
  1. REVLIMID [Suspect]
     Indication: AMYLOIDOSIS
     Dosage: 10MG MWF 3X/WK 21D/28D ORALLY
     Route: 048
  2. MIDODRINE HYDROCHLORIDE [Concomitant]
  3. CHLORPROMAZINE [Concomitant]
  4. OMEPRAZOLE [Concomitant]
  5. FUROSEMIDE [Concomitant]
  6. FLOMAX [Concomitant]
  7. PERCOCET [Concomitant]

REACTIONS (1)
  - DRUG INEFFECTIVE [None]
